FAERS Safety Report 24273976 (Version 1)
Quarter: 2024Q3

REPORT INFORMATION
  Report Type: Spontaneous
  Country: GB (occurrence: GB)
  Receive Date: 20240902
  Receipt Date: 20240902
  Transmission Date: 20241016
  Serious: Yes (Hospitalization, Other)
  Sender: BAXTER
  Company Number: None

PATIENT
  Sex: Female

DRUGS (1)
  1. METOCLOPRAMIDE [Suspect]
     Active Substance: METOCLOPRAMIDE
     Indication: Adverse drug reaction
     Dosage: UNK
     Route: 065

REACTIONS (3)
  - Trismus [Recovered/Resolved]
  - Trismus [Recovered/Resolved]
  - Medication error [Unknown]
